FAERS Safety Report 4865788-4 (Version None)
Quarter: 2005Q4

REPORT INFORMATION
  Report Type: 
  Country: None (occurrence: None)
  Receive Date: 20051223
  Receipt Date: 20050719
  Transmission Date: 20060501
  Serious: Yes (Hospitalization, Other)
  Sender: FDA-Public Use
  Company Number: PHEH2005US08028

PATIENT
  Age: 76 Year
  Sex: Male

DRUGS (9)
  1. ZOMETA [Suspect]
     Indication: PROSTATE CANCER METASTATIC
     Dosage: 4 MG, EVERY MONTH
     Dates: start: 20040201
  2. RADIOTHERAPY [Suspect]
  3. EMCYT [Concomitant]
     Indication: PROSTATE CANCER
     Dates: start: 20041201
  4. CYTOXAN [Concomitant]
     Indication: PROSTATE CANCER
     Dates: start: 20041201
  5. BLOOD AND RELATED PRODUCTS [Concomitant]
     Dates: start: 20050111
  6. PROCRIT [Concomitant]
     Dates: start: 20050415
  7. PROZAC [Concomitant]
     Indication: DEPRESSION
  8. CASODEX [Concomitant]
     Indication: PROSTATE CANCER
     Dates: start: 20030701
  9. THALIDOMIDE [Concomitant]
     Indication: PROSTATE CANCER

REACTIONS (19)
  - ANAEMIA [None]
  - ASTHENIA [None]
  - BACK PAIN [None]
  - BENIGN NEOPLASM OF BLADDER [None]
  - BENIGN TUMOUR EXCISION [None]
  - BLADDER DISORDER [None]
  - BLADDER NECROSIS [None]
  - BLOOD GLUCOSE INCREASED [None]
  - CYSTOSCOPY [None]
  - DISEASE PROGRESSION [None]
  - HAEMATOCRIT DECREASED [None]
  - HAEMATURIA [None]
  - HAEMOGLOBIN DECREASED [None]
  - LEUKOPENIA [None]
  - MALIGNANT NEOPLASM PROGRESSION [None]
  - RADIATION EXPOSURE [None]
  - TRANSURETHRAL BLADDER RESECTION [None]
  - URINARY TRACT INFECTION [None]
  - WHITE BLOOD CELL COUNT DECREASED [None]
